FAERS Safety Report 8510389-X (Version None)
Quarter: 2012Q3

REPORT INFORMATION
  Report Type: 
  Country: None (occurrence: None)
  Receive Date: 20120713
  Receipt Date: 20120705
  Transmission Date: 20120928
  Serious: Yes (Hospitalization, Other)
  Sender: FDA-Public Use
  Company Number: US-RB-040815-12

PATIENT
  Sex: Female
  Weight: 47 kg

DRUGS (14)
  1. AMBIEN [Suspect]
     Indication: PRODUCT USED FOR UNKNOWN INDICATION
     Dosage: DOSING DETAILS UNKNOWN
     Route: 065
     Dates: start: 20120523, end: 20120501
  2. BUPRENORPHINE [Suspect]
     Indication: DRUG DEPENDENCE
     Route: 060
  3. ZOLOFT [Concomitant]
     Dosage: UNIT DOSE UNKNOWN
     Route: 065
     Dates: start: 20111201, end: 20120501
  4. SUBUTEX [Suspect]
     Dosage: DOSING DETAILS UNKNOWN
     Route: 065
  5. BENADRYL [Suspect]
     Indication: PRODUCT USED FOR UNKNOWN INDICATION
     Dosage: DOSING DETAILS UNKNOWN
     Route: 065
     Dates: start: 20120523, end: 20120501
  6. IRON SULFATETHIAMIN COMPOUND TAB [Suspect]
     Indication: IRON DEFICIENCY ANAEMIA
     Dosage: 1 TAB 3 TIMES A DAY WITH MEALS (65 FE)
     Route: 048
  7. SUBUTEX [Suspect]
     Indication: DRUG DEPENDENCE
     Route: 060
     Dates: start: 20110601
  8. SUBUTEX [Suspect]
     Route: 060
     Dates: start: 20110601, end: 20120601
  9. LIBRIUM [Suspect]
     Indication: PRODUCT USED FOR UNKNOWN INDICATION
     Dosage: DOSING DETAILS UNKNOWN
     Route: 065
     Dates: start: 20120523, end: 20120501
  10. SUBUTEX [Suspect]
     Dosage: TAPERED DOWN FROM 8 MG
     Route: 060
     Dates: start: 20110207, end: 20110601
  11. SUBOXONE [Suspect]
     Indication: DRUG DEPENDENCE
     Dosage: DOSING DETAILS UNKNOWN
     Route: 060
  12. HYDROXYZINE [Suspect]
     Indication: PRURITUS
     Dosage: I TAB EVERY 6 HOURS AS NEEDED
     Route: 048
  13. ZOLOFT [Concomitant]
     Indication: DEPRESSION
     Dosage: 1.5 TABS DAILY
     Route: 048
  14. SUBUTEX [Suspect]
     Route: 060
     Dates: start: 20110601, end: 20110601

REACTIONS (15)
  - COGNITIVE DISORDER [None]
  - HEPATIC ENZYME INCREASED [None]
  - PAIN [None]
  - SOMNOLENCE [None]
  - HEPATOTOXICITY [None]
  - SUBSTANCE ABUSE [None]
  - DELIRIUM [None]
  - MENTAL STATUS CHANGES [None]
  - CHOLESTATIC PRURITUS [None]
  - DRUG-INDUCED LIVER INJURY [None]
  - TRANSAMINASES INCREASED [None]
  - ATAXIA [None]
  - DYSARTHRIA [None]
  - JAUNDICE [None]
  - IRON DEFICIENCY ANAEMIA [None]
